FAERS Safety Report 21254952 (Version 1)
Quarter: 2022Q3

REPORT INFORMATION
  Report Type: Report from Study
  Country: US (occurrence: US)
  Receive Date: 20220825
  Receipt Date: 20220825
  Transmission Date: 20221027
  Serious: No
  Sender: FDA-Public Use
  Company Number: US-NOVARTISTESTPH-NVSC2022US187694

PATIENT
  Sex: Female

DRUGS (1)
  1. KESIMPTA [Suspect]
     Active Substance: OFATUMUMAB
     Indication: Multiple sclerosis
     Dosage: 20 MG, QW
     Route: 058
     Dates: start: 20220812

REACTIONS (5)
  - Muscle tightness [Recovering/Resolving]
  - Malaise [Unknown]
  - Insomnia [Recovering/Resolving]
  - Limb discomfort [Recovering/Resolving]
  - Axillary pain [Recovering/Resolving]
